FAERS Safety Report 5238702-X (Version None)
Quarter: 2007Q1

REPORT INFORMATION
  Report Type: 
  Country: None (occurrence: None)
  Receive Date: 20061208
  Receipt Date: 20050223
  Transmission Date: 20070707
  Serious: Yes (Other)
  Sender: FDA-Public Use
  Company Number: 2005UW00768

PATIENT
  Age: 58 Year
  Sex: Male
  Weight: 95.254 kg

DRUGS (9)
  1. CRESTOR [Suspect]
     Indication: BLOOD CHOLESTEROL INCREASED
     Dosage: 10 MG DAILY PO
     Route: 048
     Dates: start: 20040701, end: 20050117
  2. VERAPAMIL [Concomitant]
  3. ATENOLOL [Concomitant]
  4. OMEPRAZOLE [Concomitant]
  5. TRIAMTERENE [Concomitant]
  6. ASPIRIN [Concomitant]
  7. SELENIUM SULFIDE [Concomitant]
  8. DESONIDE [Concomitant]
  9. LOPID [Concomitant]

REACTIONS (2)
  - COSTOCHONDRITIS [None]
  - HYPERAESTHESIA [None]
